FAERS Safety Report 8953553 (Version 2)
Quarter: 2013Q1

REPORT INFORMATION
  Report Type: Spontaneous
  Country: US (occurrence: US)
  Receive Date: 20121206
  Receipt Date: 20130110
  Transmission Date: 20140127
  Serious: No
  Sender: FDA-Public Use
  Company Number: US-PFIZER INC-2012303882

PATIENT
  Age: 56 Year
  Sex: Female
  Weight: 59.86 kg

DRUGS (2)
  1. ALAVERT [Suspect]
     Indication: HYPERSENSITIVITY
     Dosage: 10 MG, 1X/DAY
     Route: 048
  2. CELEXA [Concomitant]
     Dosage: UNK

REACTIONS (6)
  - Drug effect incomplete [Unknown]
  - Expired drug administered [Unknown]
  - Eye pruritus [Unknown]
  - Ear pruritus [Unknown]
  - Throat irritation [Unknown]
  - Sneezing [Unknown]
